FAERS Safety Report 10251807 (Version 2)
Quarter: 2014Q3

REPORT INFORMATION
  Report Type: Spontaneous
  Country: US (occurrence: None)
  Receive Date: 20140619
  Receipt Date: 20140812
  Transmission Date: 20150326
  Serious: Yes (Other)
  Sender: FDA-Public Use
  Company Number: JPI-P-031557

PATIENT
  Age: 31 Year
  Sex: Female

DRUGS (3)
  1. XYREM [Suspect]
     Active Substance: SODIUM OXYBATE
     Indication: CATAPLEXY
     Route: 048
     Dates: start: 200808, end: 200808
  2. XYREM [Suspect]
     Active Substance: SODIUM OXYBATE
     Indication: NARCOLEPSY
     Route: 048
     Dates: start: 200808, end: 200808
  3. AMBIEN [Suspect]
     Active Substance: ZOLPIDEM TARTRATE
     Indication: PRODUCT USED FOR UNKNOWN INDICATION

REACTIONS (9)
  - Pregnancy [None]
  - Maternal drugs affecting foetus [None]
  - Pre-eclampsia [None]
  - Feeling abnormal [None]
  - Cataplexy [None]
  - Back pain [None]
  - Premature delivery [None]
  - Kidney infection [None]
  - Maternal exposure before pregnancy [None]

NARRATIVE: CASE EVENT DATE: 20110817
